FAERS Safety Report 4886141-3 (Version None)
Quarter: 2006Q1

REPORT INFORMATION
  Report Type: 
  Country: None (occurrence: None)
  Receive Date: 20060120
  Receipt Date: 20051007
  Transmission Date: 20060701
  Serious: Yes (Other)
  Sender: FDA-Public Use
  Company Number: CA-GLAXOSMITHKLINE-A0577552A

PATIENT
  Age: 79 Year
  Sex: Male
  Weight: 70.9 kg

DRUGS (15)
  1. AVANDIA [Suspect]
     Indication: DRUG USE FOR UNKNOWN INDICATION
     Dosage: 4MG TWICE PER DAY
     Route: 065
     Dates: start: 20030201
  2. ASPIRIN [Suspect]
     Indication: DRUG USE FOR UNKNOWN INDICATION
     Dosage: 325MG PER DAY
  3. L-THYROXINE [Concomitant]
     Dosage: 200MCG PER DAY
  4. RYTHMOL [Concomitant]
  5. DILTIAZEM [Concomitant]
     Dosage: 240MG PER DAY
  6. ALTACE [Concomitant]
     Dosage: 5MG TWICE PER DAY
  7. TRIAMTERENE AND HYDROCHLOROTHIAZIDE [Concomitant]
  8. SIMVASTATIN [Concomitant]
     Dosage: 40MG PER DAY
  9. MINOCYCLINE HCL [Concomitant]
     Indication: ROSACEA
     Dosage: 50MG PER DAY
  10. SERTRALINE [Concomitant]
     Indication: DEPRESSION
     Dosage: 100MG PER DAY
  11. MULTI-VITAMIN [Concomitant]
     Dosage: 1TAB PER DAY
  12. ASCORBIC ACID [Concomitant]
     Dosage: 500MG TWICE PER DAY
  13. ACETAMINOPHEN [Concomitant]
     Dosage: 500MG AS REQUIRED
  14. CAFERGOT [Concomitant]
  15. SERAX [Concomitant]
     Dosage: 7.5MG AS REQUIRED

REACTIONS (7)
  - ANAEMIA [None]
  - CHRONIC LYMPHOCYTIC LEUKAEMIA [None]
  - FATIGUE [None]
  - LYMPHOCYTOSIS [None]
  - MALAISE [None]
  - MONOCYTOSIS [None]
  - RESPIRATORY DISORDER [None]
